FAERS Safety Report 7568478-2 (Version None)
Quarter: 2011Q2

REPORT INFORMATION
  Report Type: 
  Country: None (occurrence: None)
  Receive Date: 20110617
  Receipt Date: 20110607
  Transmission Date: 20111010
  Serious: Yes (Other)
  Sender: FDA-Public Use
  Company Number: FK201101171

PATIENT
  Age: 50 Year
  Sex: Female

DRUGS (2)
  1. CISPLATIN [Suspect]
     Indication: LUNG NEOPLASM MALIGNANT
     Dosage: 75 MG/M2, INTRAVENOUS
     Route: 042
  2. VINORELBINE [Suspect]
     Indication: LUNG NEOPLASM MALIGNANT

REACTIONS (1)
  - AORTIC THROMBOSIS [None]
